FAERS Safety Report 10022547 (Version 1)
Quarter: 2014Q1

REPORT INFORMATION
  Report Type: Spontaneous
  Country: GB (occurrence: GB)
  Receive Date: 20140319
  Receipt Date: 20140319
  Transmission Date: 20141002
  Serious: Yes (Hospitalization, Other)
  Sender: FDA-Public Use
  Company Number: PHHY2014GB029751

PATIENT
  Age: 56 Year
  Sex: 0

DRUGS (2)
  1. AZATHIOPRINE [Suspect]
     Indication: RHEUMATOID ARTHRITIS
     Dosage: 150 MG, UNK
     Route: 048
     Dates: start: 20130606
  2. WARFARIN [Interacting]
     Indication: DEEP VEIN THROMBOSIS
     Route: 048
     Dates: start: 20000330

REACTIONS (3)
  - Deep vein thrombosis [Unknown]
  - International normalised ratio decreased [Recovered/Resolved]
  - Drug interaction [Unknown]
